FAERS Safety Report 8954778 (Version 6)
Quarter: 2013Q2

REPORT INFORMATION
  Report Type: Report from Study
  Country: PL (occurrence: PL)
  Receive Date: 20121207
  Receipt Date: 20130522
  Transmission Date: 20140414
  Serious: Yes (Hospitalization)
  Sender: FDA-Public Use
  Company Number: PL-GLAXOSMITHKLINE-B0850093A

PATIENT
  Age: 63 Year
  Sex: Male
  Weight: 70 kg

DRUGS (3)
  1. FLUTICASONE FUROATE [Suspect]
     Indication: CHRONIC OBSTRUCTIVE PULMONARY DISEASE
     Dates: start: 20120313, end: 20121115
  2. ATORVASTATIN [Concomitant]
     Indication: HYPERCHOLESTEROLAEMIA
     Dosage: 20MG PER DAY
     Route: 048
     Dates: start: 2009
  3. LOSARTAN [Concomitant]
     Indication: HYPERTENSION
     Dosage: 50MG PER DAY
     Route: 048
     Dates: start: 2009

REACTIONS (2)
  - Pulmonary tuberculosis [Recovered/Resolved]
  - Pneumonia [Recovered/Resolved]
